FAERS Safety Report 16052286 (Version 1)
Quarter: 2019Q1

REPORT INFORMATION
  Report Type: Report from Study
  Country: US (occurrence: US)
  Receive Date: 20190308
  Receipt Date: 20190308
  Transmission Date: 20190418
  Serious: No
  Sender: FDA-Public Use
  Company Number: US-ROCHE-2278036

PATIENT
  Sex: Female

DRUGS (1)
  1. OCREVUS [Suspect]
     Active Substance: OCRELIZUMAB
     Indication: PRIMARY PROGRESSIVE MULTIPLE SCLEROSIS
     Dosage: 300 MG DAY 1 AND DAY 15, THEN 600 MG EVERY 6 MONTHS
     Route: 065
     Dates: start: 20190125

REACTIONS (2)
  - Infection [Recovered/Resolved]
  - Swelling [Recovered/Resolved]
